FAERS Safety Report 6477323-8 (Version None)
Quarter: 2009Q4

REPORT INFORMATION
  Report Type: 
  Country: None (occurrence: None)
  Receive Date: 20091204
  Receipt Date: 20091204
  Transmission Date: 20100525
  Serious: Yes (Death, Life-Threatening, Hospitalization, Other)
  Sender: FDA-Public Use
  Company Number: None

PATIENT
  Sex: Female
  Weight: 38.1022 kg

DRUGS (2)
  1. RECLAST [Suspect]
     Dosage: 5MG  12/12/07 + 10/8/09 IV
     Route: 042
     Dates: start: 20071212
  2. RECLAST [Suspect]
     Dosage: 5MG  12/12/07 + 10/8/09 IV
     Route: 042
     Dates: start: 20091008

REACTIONS (9)
  - BLOOD CALCIUM ABNORMAL [None]
  - BLOOD MAGNESIUM ABNORMAL [None]
  - BLOOD POTASSIUM ABNORMAL [None]
  - DIALYSIS [None]
  - OESOPHAGEAL RUPTURE [None]
  - OROPHARYNGITIS FUNGAL [None]
  - PLEURAL EFFUSION [None]
  - PULMONARY HAEMORRHAGE [None]
  - RENAL FAILURE [None]
